FAERS Safety Report 6308299-1 (Version None)
Quarter: 2009Q3

REPORT INFORMATION
  Report Type: 
  Country: None (occurrence: None)
  Receive Date: 20090813
  Receipt Date: 20090807
  Transmission Date: 20100115
  Serious: Yes (Hospitalization)
  Sender: FDA-Public Use
  Company Number: DE-MERCK-0906DEU00043

PATIENT
  Age: 41 Year
  Sex: Female
  Weight: 66 kg

DRUGS (7)
  1. MAXALT [Suspect]
     Indication: MIGRAINE
     Route: 048
     Dates: start: 20060101, end: 20090607
  2. MAXALT [Suspect]
     Route: 048
     Dates: start: 20090611, end: 20090611
  3. THYRONAJOD [Concomitant]
     Route: 048
  4. ENOXAPARIN SODIUM [Concomitant]
     Route: 051
  5. DIPYRONE [Concomitant]
     Route: 048
  6. DICLAC [Concomitant]
     Route: 048
  7. ACETAMINOPHEN AND ASPIRIN AND CAFFEINE [Concomitant]
     Route: 048

REACTIONS (5)
  - ADVERSE EVENT [None]
  - ARTHRALGIA [None]
  - MUSCULOSKELETAL PAIN [None]
  - PAIN IN EXTREMITY [None]
  - SKIN DISCOLOURATION [None]
